FAERS Safety Report 11128569 (Version 2)
Quarter: 2015Q2

REPORT INFORMATION
  Report Type: Report from Study
  Country: US (occurrence: US)
  Receive Date: 20150521
  Receipt Date: 20150608
  Transmission Date: 20150821
  Serious: Yes (Hospitalization)
  Sender: FDA-Public Use
  Company Number: US-SA-2014SA009877

PATIENT
  Age: 58 Year
  Sex: Female

DRUGS (4)
  1. AUBAGIO [Suspect]
     Active Substance: TERIFLUNOMIDE
     Indication: MULTIPLE SCLEROSIS
     Route: 048
     Dates: start: 20140116, end: 20140401
  2. AUBAGIO [Suspect]
     Active Substance: TERIFLUNOMIDE
     Indication: MULTIPLE SCLEROSIS
     Route: 048
     Dates: start: 20140415
  3. AUBAGIO [Suspect]
     Active Substance: TERIFLUNOMIDE
     Indication: MULTIPLE SCLEROSIS
     Route: 048
     Dates: start: 20150405, end: 20150527
  4. CHANTIX [Concomitant]
     Active Substance: VARENICLINE TARTRATE

REACTIONS (34)
  - Dysphagia [Recovering/Resolving]
  - Dizziness [Recovering/Resolving]
  - Sinusitis [Unknown]
  - Feeling cold [Unknown]
  - Multiple sclerosis relapse [Not Recovered/Not Resolved]
  - Speech disorder [Recovering/Resolving]
  - Hypoaesthesia [Unknown]
  - Blood test abnormal [Unknown]
  - Circulatory collapse [Unknown]
  - Gait disturbance [Recovering/Resolving]
  - Limb discomfort [Recovering/Resolving]
  - Impaired driving ability [Unknown]
  - Chest discomfort [Unknown]
  - Nasal congestion [Unknown]
  - Headache [Unknown]
  - Abdominal pain [Unknown]
  - Eye disorder [Unknown]
  - Mobility decreased [Unknown]
  - Urine odour abnormal [Not Recovered/Not Resolved]
  - Vision blurred [Unknown]
  - Oropharyngeal pain [Unknown]
  - Crying [Recovering/Resolving]
  - Weight decreased [Unknown]
  - Diarrhoea [Not Recovered/Not Resolved]
  - Bladder disorder [Recovering/Resolving]
  - Accident [Not Recovered/Not Resolved]
  - Malaise [Unknown]
  - Chills [Unknown]
  - Photophobia [Unknown]
  - Paraesthesia [Unknown]
  - Faecal incontinence [Unknown]
  - Depression [Recovering/Resolving]
  - Feeling abnormal [Unknown]
  - Temperature intolerance [Unknown]

NARRATIVE: CASE EVENT DATE: 201401
